FAERS Safety Report 19180546 (Version 1)
Quarter: 2021Q2

REPORT INFORMATION
  Report Type: Report from Study
  Country: US (occurrence: US)
  Receive Date: 20210426
  Receipt Date: 20210426
  Transmission Date: 20210717
  Serious: Yes (Other)
  Sender: FDA-Public Use
  Company Number: US-ASTRAZENECA-2021A321877

PATIENT
  Age: 105 Month
  Sex: Female
  Weight: 33.6 kg

DRUGS (15)
  1. FOLIC ACID. [Concomitant]
     Active Substance: FOLIC ACID
  2. ACETAMINOPHEN. [Concomitant]
     Active Substance: ACETAMINOPHEN
  3. BACTRIM [Concomitant]
     Active Substance: SULFAMETHOXAZOLE\TRIMETHOPRIM
     Dosage: 400?80 MG
  4. ONDANSETRON [Concomitant]
     Active Substance: ONDANSETRON
  5. PHYTONADIONE. [Concomitant]
     Active Substance: PHYTONADIONE
  6. MIRALAX [Concomitant]
     Active Substance: POLYETHYLENE GLYCOL 3350
  7. MULTIVITAMIN [Concomitant]
     Active Substance: VITAMINS
  8. KOSELUGO [Suspect]
     Active Substance: SELUMETINIB
     Indication: ACUTE LYMPHOCYTIC LEUKAEMIA
     Route: 048
     Dates: start: 20210305
  9. ACYCLOVIR. [Concomitant]
     Active Substance: ACYCLOVIR
  10. BACTRIM [Concomitant]
     Active Substance: SULFAMETHOXAZOLE\TRIMETHOPRIM
  11. HYDROCORTISONE. [Concomitant]
     Active Substance: HYDROCORTISONE
     Dosage: 2.5 %
  12. KEFLEX [Concomitant]
     Active Substance: CEPHALEXIN
  13. MELATONIN [Concomitant]
     Active Substance: MELATONIN
  14. AZITHROMYCIN ANHYDROUS. [Concomitant]
     Active Substance: AZITHROMYCIN ANHYDROUS
  15. PREVACID [Concomitant]
     Active Substance: LANSOPRAZOLE

REACTIONS (4)
  - Anaemia [Unknown]
  - Splenomegaly [Not Recovered/Not Resolved]
  - Blood bilirubin abnormal [Unknown]
  - Dehydration [Recovered/Resolved]

NARRATIVE: CASE EVENT DATE: 202012
